FAERS Safety Report 7137678-8 (Version None)
Quarter: 2010Q4

REPORT INFORMATION
  Report Type: 
  Country: None (occurrence: None)
  Receive Date: 20101206
  Receipt Date: 20101130
  Transmission Date: 20110411
  Serious: Yes (Death)
  Sender: FDA-Public Use
  Company Number: BR-MEDIMMUNE-MEDI-0011861

PATIENT
  Sex: Female
  Weight: 8 kg

DRUGS (4)
  1. SYNAGIS [Suspect]
     Route: 030
     Dates: start: 20100401, end: 20100801
  2. VITAMIN AD [Concomitant]
     Indication: VITAMIN SUPPLEMENTATION
     Route: 048
     Dates: start: 20091214, end: 20101114
  3. FERRO-FOLSAN [Concomitant]
     Route: 048
     Dates: start: 20091214, end: 20101014
  4. C VITAMIN [Concomitant]
     Route: 048
     Dates: start: 20100101, end: 20101014

REACTIONS (5)
  - ACUTE RESPIRATORY FAILURE [None]
  - BRONCHOPNEUMONIA [None]
  - ILL-DEFINED DISORDER [None]
  - MENINGITIS [None]
  - SKIN DISCOLOURATION [None]
